FAERS Safety Report 17717954 (Version 3)
Quarter: 2020Q2

REPORT INFORMATION
  Report Type: Report from Study
  Country: CA (occurrence: CA)
  Receive Date: 20200428
  Receipt Date: 20200624
  Transmission Date: 20200714
  Serious: Yes (Other)
  Sender: FDA-Public Use
  Company Number: PHHY2019CA044099

PATIENT
  Age: 47 Year
  Sex: Female

DRUGS (1)
  1. SANDOSTATIN LAR DEPOT [Suspect]
     Active Substance: OCTREOTIDE ACETATE
     Indication: ACROMEGALY
     Dosage: 20 MG, QMO
     Route: 030
     Dates: start: 20050623

REACTIONS (6)
  - Addison^s disease [Unknown]
  - Trigeminal neuralgia [Unknown]
  - Blood pressure increased [Unknown]
  - Therapeutic response decreased [Unknown]
  - Blood growth hormone abnormal [Unknown]
  - Facial neuralgia [Unknown]

NARRATIVE: CASE EVENT DATE: 200510
